FAERS Safety Report 15302617 (Version 2)
Quarter: 2018Q3

REPORT INFORMATION
  Report Type: Spontaneous
  Country: DE (occurrence: DE)
  Receive Date: 20180821
  Receipt Date: 20180823
  Transmission Date: 20181010
  Serious: Yes (Other)
  Sender: FDA-Public Use
  Company Number: DE-PFIZER INC-2018333423

PATIENT
  Age: 23 Year
  Sex: Female

DRUGS (8)
  1. NATAMYCIN [Concomitant]
     Active Substance: NATAMYCIN
     Indication: KERATITIS FUNGAL
     Dosage: 5.0 %
     Route: 061
  2. CEFTAZIDIME. [Concomitant]
     Active Substance: CEFTAZIDIME
     Indication: KERATITIS FUNGAL
     Dosage: UNK
  3. CEFTAZIDIME. [Concomitant]
     Active Substance: CEFTAZIDIME
     Indication: ENDOPHTHALMITIS
  4. VANCOMYCIN [Concomitant]
     Active Substance: VANCOMYCIN
     Indication: KERATITIS FUNGAL
  5. AMPHOTERICIN B. [Concomitant]
     Active Substance: AMPHOTERICIN B
     Indication: KERATITIS FUNGAL
     Dosage: UNK
     Route: 031
  6. TERBINAFINE. [Suspect]
     Active Substance: TERBINAFINE
     Indication: KERATITIS FUNGAL
     Dosage: 250 MG
     Route: 062
  7. VANCOMYCIN [Concomitant]
     Active Substance: VANCOMYCIN
     Indication: ENDOPHTHALMITIS
     Dosage: UNK
  8. VORICONAZOLE. [Suspect]
     Active Substance: VORICONAZOLE
     Indication: KERATITIS FUNGAL
     Dosage: UNK

REACTIONS (2)
  - Pathogen resistance [Unknown]
  - Product use in unapproved indication [Unknown]
